FAERS Safety Report 23959419 (Version 1)
Quarter: 2024Q2

REPORT INFORMATION
  Report Type: Spontaneous
  Country: US (occurrence: US)
  Receive Date: 20240611
  Receipt Date: 20240611
  Transmission Date: 20240716
  Serious: Yes (Hospitalization)
  Sender: FDA-Public Use
  Company Number: US-ORPHANEU-2024004160

PATIENT

DRUGS (1)
  1. ISTURISA [Suspect]
     Active Substance: OSILODROSTAT PHOSPHATE
     Indication: Product used for unknown indication
     Dosage: 4 MILLIGRAM, BID

REACTIONS (4)
  - Acute kidney injury [Unknown]
  - Cardiac failure [Unknown]
  - Dyspnoea [Unknown]
  - Oedema [Unknown]
